FAERS Safety Report 5006824-4 (Version None)
Quarter: 2006Q2

REPORT INFORMATION
  Report Type: 
  Country: None (occurrence: None)
  Receive Date: 20060516
  Receipt Date: 20060503
  Transmission Date: 20061013
  Serious: Yes (Life-Threatening, Hospitalization, Other)
  Sender: FDA-Public Use
  Company Number: T200600440

PATIENT
  Age: 38 Year
  Sex: Male

DRUGS (3)
  1. METHADOSE ORAL CONCENTRATE (METHADONE HYDROCHLORIDE) SYRUP, 10MG/ML [Suspect]
     Dosage: 200 MG, QD
  2. BENZODIAZEPINES [Concomitant]
  3. CANNABIS (CANNABIS SATIVA) [Concomitant]

REACTIONS (7)
  - DRUG TOXICITY [None]
  - ELECTROCARDIOGRAM QT CORRECTED INTERVAL PROLONGED [None]
  - ELECTROCARDIOGRAM QT PROLONGED [None]
  - HYPOKALAEMIA [None]
  - SYNCOPE [None]
  - TORSADE DE POINTES [None]
  - VENTRICULAR FIBRILLATION [None]
